FAERS Safety Report 9062807 (Version 1)
Quarter: 2013Q1

REPORT INFORMATION
  Report Type: Report from Study
  Country: US (occurrence: US)
  Receive Date: 20130129
  Receipt Date: 20130129
  Transmission Date: 20140127
  Serious: No
  Sender: FDA-Public Use
  Company Number: US-ABBOTT-12P-163-0950206-00

PATIENT
  Age: 52 Year
  Sex: Female

DRUGS (8)
  1. HUMIRA 40 MG/0.8 ML PEN [Suspect]
     Indication: CROHN^S DISEASE
  2. BELLADONNA [Concomitant]
     Indication: MUSCLE SPASMS
     Dosage: 1 15MG TAB EVERY 4-6 HOURS AS NEEDED
  3. TRAMADOL [Concomitant]
     Indication: PAIN
  4. REMERON [Concomitant]
     Indication: DEPRESSION
     Dosage: AT BED TIME
  5. RESTORIL [Concomitant]
     Indication: INSOMNIA
     Dosage: AT BEDTIME
  6. KLONOPIN [Concomitant]
     Indication: ANXIETY
     Dosage: 1 TAB
  7. KLONOPIN [Concomitant]
     Indication: PANIC ATTACK
  8. PHENERGAN [Concomitant]
     Indication: NAUSEA

REACTIONS (4)
  - Injection site bruising [Not Recovered/Not Resolved]
  - Injection site erythema [Not Recovered/Not Resolved]
  - Injection site pruritus [Not Recovered/Not Resolved]
  - Injection site swelling [Not Recovered/Not Resolved]
